FAERS Safety Report 21376969 (Version 1)
Quarter: 2022Q3

REPORT INFORMATION
  Report Type: Spontaneous
  Country: DE (occurrence: DE)
  Receive Date: 20220926
  Receipt Date: 20220926
  Transmission Date: 20221027
  Serious: Yes (Hospitalization)
  Sender: FDA-Public Use
  Company Number: None

PATIENT
  Age: 59 Year
  Sex: Male

DRUGS (5)
  1. EPLERENONE [Suspect]
     Active Substance: EPLERENONE
     Dosage: 1-0-0-0, 1X/DAY
     Route: 048
  2. IBUPROFEN [Suspect]
     Active Substance: IBUPROFEN
     Dosage: UNK, AS NEEDED
     Route: 048
  3. TELMISARTAN [Suspect]
     Active Substance: TELMISARTAN
     Dosage: 0-0-1-0, 1X/DAY
     Route: 048
  4. METOPROLOL [Concomitant]
     Active Substance: METOPROLOL
     Dosage: 1-0-1-0, 2X/DAY
     Route: 048
  5. LEVOTHYROXINE SODIUM [Concomitant]
     Active Substance: LEVOTHYROXINE SODIUM
     Dosage: 2-0-0-0, 1X/DAY
     Route: 048

REACTIONS (8)
  - Arthralgia [Unknown]
  - Acute kidney injury [Unknown]
  - Musculoskeletal stiffness [Unknown]
  - Gout [Unknown]
  - Disease recurrence [Unknown]
  - Haematocrit decreased [Unknown]
  - Haemoglobin decreased [Unknown]
  - Red blood cell count decreased [Unknown]

NARRATIVE: CASE EVENT DATE: 20211017
